FAERS Safety Report 25257990 (Version 2)
Quarter: 2025Q2

REPORT INFORMATION
  Report Type: Spontaneous
  Country: US (occurrence: US)
  Receive Date: 20250501
  Receipt Date: 20250501
  Transmission Date: 20250717
  Serious: Yes (Other)
  Sender: AMGEN
  Company Number: US-AMGEN-USASP2025081634

PATIENT
  Age: 48 Year
  Sex: Male

DRUGS (8)
  1. RITUXIMAB [Suspect]
     Active Substance: RITUXIMAB
     Indication: Glomerulonephritis proliferative
     Route: 065
  2. CYCLOPHOSPHAMIDE [Concomitant]
     Active Substance: CYCLOPHOSPHAMIDE
     Indication: Glomerulonephritis proliferative
  3. BORTEZOMIB [Concomitant]
     Active Substance: BORTEZOMIB
     Indication: Glomerulonephritis proliferative
  4. DEXAMETHASONE [Concomitant]
     Active Substance: DEXAMETHASONE
     Indication: Glomerulonephritis proliferative
  5. DARATUMUMAB [Concomitant]
     Active Substance: DARATUMUMAB
     Indication: Glomerulonephritis proliferative
  6. IBRUTINIB [Concomitant]
     Active Substance: IBRUTINIB
     Indication: Glomerulonephritis proliferative
  7. TACROLIMUS [Concomitant]
     Active Substance: TACROLIMUS
     Indication: Immunosuppression
  8. MYCOPHENOLATE MOFETIL [Concomitant]
     Active Substance: MYCOPHENOLATE MOFETIL
     Indication: Immunosuppression

REACTIONS (9)
  - End stage renal disease [Unknown]
  - Kidney transplant rejection [Unknown]
  - Delayed graft function [Unknown]
  - Glomerulonephritis membranoproliferative [Unknown]
  - Drug ineffective for unapproved indication [Unknown]
  - Off label use [Unknown]
  - Disease recurrence [Unknown]
  - COVID-19 [Unknown]
  - Haematuria [Unknown]
